FAERS Safety Report 4514389-6 (Version None)
Quarter: 2004Q4

REPORT INFORMATION
  Report Type: 
  Country: None (occurrence: None)
  Receive Date: 20041124
  Receipt Date: 20041115
  Transmission Date: 20050328
  Serious: Yes (Life-Threatening, Hospitalization)
  Sender: FDA-Public Use
  Company Number: US014149

PATIENT
  Age: 28 Year
  Sex: Female

DRUGS (2)
  1. MODAFINIL [Suspect]
     Indication: NARCOLEPSY
     Dosage: 2 TABS QD ORAL
     Route: 048
     Dates: start: 20030528, end: 20041004
  2. AERIUS [Suspect]
     Indication: RHINITIS ALLERGIC
     Dates: start: 20040915, end: 20041004

REACTIONS (4)
  - AGGRESSION [None]
  - DRUG INTERACTION [None]
  - SOMNOLENCE [None]
  - SUICIDE ATTEMPT [None]
